FAERS Safety Report 10999275 (Version 1)
Quarter: 2015Q2

REPORT INFORMATION
  Report Type: Spontaneous
  Country: US (occurrence: US)
  Receive Date: 20150408
  Receipt Date: 20150408
  Transmission Date: 20150821
  Serious: No
  Sender: FDA-Public Use
  Company Number: US-SA-2014SA064346

PATIENT

DRUGS (2)
  1. ALLEGRA [Suspect]
     Active Substance: FEXOFENADINE HYDROCHLORIDE
     Indication: SEASONAL ALLERGY
     Dosage: TAKEN 2 FOR SEASONAL ALLERGIES AND 3 FOR CATS.
     Route: 048
  2. ALLEGRA [Suspect]
     Active Substance: FEXOFENADINE HYDROCHLORIDE
     Indication: ALLERGY TO ANIMAL
     Dosage: TAKEN 2 FOR SEASONAL ALLERGIES AND 3 FOR CATS.
     Route: 048

REACTIONS (1)
  - Extra dose administered [Unknown]
